FAERS Safety Report 5011367-8 (Version None)
Quarter: 2006Q2

REPORT INFORMATION
  Report Type: 
  Country: None (occurrence: None)
  Receive Date: 20060523
  Receipt Date: 20060510
  Transmission Date: 20061013
  Serious: Yes (Death, Disabling)
  Sender: FDA-Public Use
  Company Number: 2006JP000685

PATIENT
  Age: 61 Year
  Sex: Female
  Weight: 44.6 kg

DRUGS (24)
  1. PROGRAF [Suspect]
     Indication: BONE MARROW TRANSPLANT
     Dosage: 2 DF , BID, ORAL
     Route: 048
     Dates: start: 20040803, end: 20040908
  2. PROGRAF [Suspect]
     Indication: BONE MARROW TRANSPLANT
     Dosage: 0.7 MG, CONTINUOUS, IV NOS
     Route: 042
  3. PREDNISOLONE [Suspect]
     Indication: GRAFT VERSUS HOST DISEASE
     Dosage: 40 MG, BID, ORAL; SEE IMAGE
     Route: 048
     Dates: start: 20040828, end: 20040831
  4. PREDNISOLONE [Suspect]
     Indication: GRAFT VERSUS HOST DISEASE
     Dosage: 40 MG, BID, ORAL; SEE IMAGE
     Route: 048
     Dates: start: 20040831, end: 20040903
  5. PREDNISOLONE [Suspect]
     Indication: GRAFT VERSUS HOST DISEASE
     Dosage: 40 MG, BID, ORAL; SEE IMAGE
     Route: 048
     Dates: start: 20040904, end: 20040907
  6. PREDNISOLONE [Suspect]
     Indication: GRAFT VERSUS HOST DISEASE
     Dosage: 40 MG, BID, ORAL; SEE IMAGE
     Route: 048
     Dates: start: 20040908, end: 20040908
  7. PREDONINE              (PREDNISOLONE SODIUM SUCCINATE) INJECTION [Suspect]
     Dosage: 15 MG, BID, IV NOS
     Route: 042
     Dates: start: 20040909, end: 20041012
  8. METHOTREXATE [Concomitant]
  9. ALLOPURINOL [Concomitant]
  10. SULFAMETHOXAZOLE + TRIMETHOPRIM [Concomitant]
  11. CRAVIT               (LEVOFLOXACIN) TABLET [Concomitant]
  12. ITRIZOLE            (ITRACONAZOLE) CAPSULE [Concomitant]
  13. DEPAKENE-R       (VALPROATE SODIUM) TABLET [Concomitant]
  14. MABLIN       (BUSULFAN) POWDER [Concomitant]
  15. ZOVIRAX [Concomitant]
  16. ...................... [Concomitant]
  17. GASTER TABLET [Concomitant]
  18. ....................... [Concomitant]
  19. VANCOMYCIN        (VANCOMYCIN HYDROCHLORIDE) POWDER [Concomitant]
  20. DIFLUCAN [Concomitant]
  21. FLUDARA [Concomitant]
  22. ZOFRAN [Concomitant]
  23. MAXIPIME [Concomitant]
  24. CARBENIN            (BETAMIPRON, PANIPENEM) INJECTION [Concomitant]

REACTIONS (7)
  - CEREBRAL HAEMORRHAGE [None]
  - ENCEPHALITIS HERPES [None]
  - GRAFT VERSUS HOST DISEASE [None]
  - LIVER DISORDER [None]
  - RENAL FAILURE ACUTE [None]
  - THROMBOTIC MICROANGIOPATHY [None]
  - VENOOCCLUSIVE LIVER DISEASE [None]
